FAERS Safety Report 19465179 (Version 1)
Quarter: 2021Q2

REPORT INFORMATION
  Report Type: Spontaneous
  Country: US (occurrence: US)
  Receive Date: 20210624
  Receipt Date: 20210624
  Transmission Date: 20210717
  Serious: No
  Sender: FDA-Public Use
  Company Number: US-BRACCO-2020US04814

PATIENT
  Age: 51 Year
  Sex: Male

DRUGS (1)
  1. MULTIHANCE [Suspect]
     Active Substance: GADOBENATE DIMEGLUMINE
     Indication: MAGNETIC RESONANCE IMAGING ABDOMINAL
     Dosage: UNK, SINGLE
     Dates: start: 20200911, end: 20200911

REACTIONS (2)
  - Urticaria [Unknown]
  - Blood pressure increased [Unknown]

NARRATIVE: CASE EVENT DATE: 20200911
